FAERS Safety Report 16468803 (Version 1)
Quarter: 2019Q2

REPORT INFORMATION
  Report Type: Report from Study
  Country: IT (occurrence: IT)
  Receive Date: 20190624
  Receipt Date: 20190624
  Transmission Date: 20190711
  Serious: Yes (Hospitalization)
  Sender: FDA-Public Use
  Company Number: IT-ROCHE-2343006

PATIENT
  Age: 56 Year
  Sex: Female

DRUGS (4)
  1. CLONAZEPAM. [Suspect]
     Active Substance: CLONAZEPAM
     Indication: PRODUCT USED FOR UNKNOWN INDICATION
     Route: 048
     Dates: end: 20190402
  2. TAPENTADOL [Concomitant]
     Active Substance: TAPENTADOL
     Indication: PAIN
     Route: 048
  3. PREGABALIN. [Concomitant]
     Active Substance: PREGABALIN
     Indication: PAIN
     Route: 048
  4. DULOXETINE HYDROCHLORIDE. [Concomitant]
     Active Substance: DULOXETINE HYDROCHLORIDE
     Indication: DEPRESSION
     Route: 048

REACTIONS (3)
  - Overdose [Unknown]
  - Respiratory acidosis [Recovered/Resolved with Sequelae]
  - Sopor [Recovered/Resolved with Sequelae]

NARRATIVE: CASE EVENT DATE: 20190402
